FAERS Safety Report 9845667 (Version 1)
Quarter: 2013Q4

REPORT INFORMATION
  Report Type: Spontaneous
  Country: US (occurrence: None)
  Receive Date: 20131219
  Receipt Date: 20131219
  Transmission Date: 20140711
  Serious: Yes (Death)
  Sender: FDA-Public Use
  Company Number: 163-20785-13083955

PATIENT
  Age: 76 Year
  Sex: Male
  Weight: 92.53 kg

DRUGS (5)
  1. THALOMID [Suspect]
     Indication: MYELOFIBROSIS
     Route: 048
     Dates: start: 20130509, end: 2013
  2. METOPROLOL [Concomitant]
  3. ASA (ACETYLSALICYLIC ACID) [Concomitant]
  4. CLOPIDOGREL [Concomitant]
  5. OMEPRAZOLE [Concomitant]

REACTIONS (1)
  - Death [None]
